FAERS Safety Report 23233510 (Version 2)
Quarter: 2023Q4

REPORT INFORMATION
  Report Type: Spontaneous
  Country: CN (occurrence: CN)
  Receive Date: 20231128
  Receipt Date: 20231204
  Transmission Date: 20240109
  Serious: Yes (Hospitalization, Other)
  Sender: FDA-Public Use
  Company Number: CN-MACLEODS PHARMACEUTICALS US LTD-MAC2023044446

PATIENT

DRUGS (8)
  1. OLANZAPINE [Suspect]
     Active Substance: OLANZAPINE
     Indication: Schizophrenia
     Dosage: 5 MILLIGRAM, QD (ORAL OLANZAPINE 5 MG/EVENING (TARGET DOSE 10 MG/EVENING)
     Route: 048
     Dates: start: 20220920, end: 20220924
  2. OLANZAPINE [Suspect]
     Active Substance: OLANZAPINE
     Dosage: 10 MILLIGRAM, QD
     Route: 048
     Dates: start: 20220924, end: 20221013
  3. OLANZAPINE [Suspect]
     Active Substance: OLANZAPINE
     Dosage: 2.5 MILLIGRAM, QD
     Route: 048
     Dates: start: 20221013, end: 20221027
  4. AMISULPRIDE [Suspect]
     Active Substance: AMISULPRIDE
     Indication: Schizophrenia
     Dosage: 0.4 GRAM, QD (TARGET DOSE 1.0 G/D)
     Route: 048
     Dates: start: 20220920, end: 20220929
  5. AMISULPRIDE [Suspect]
     Active Substance: AMISULPRIDE
     Dosage: 0.4 GRAM, QD
     Route: 048
     Dates: start: 20221012, end: 20221013
  6. AMISULPRIDE [Suspect]
     Active Substance: AMISULPRIDE
     Dosage: 1 GRAM, QD
     Route: 048
     Dates: start: 20220929, end: 20221012
  7. AMISULPRIDE [Suspect]
     Active Substance: AMISULPRIDE
     Dosage: UNK (REDUCED AND DISCONTINUED) (STOP DATE: 18 OCT 2022)
     Route: 048
  8. ZOPICLONE [Concomitant]
     Active Substance: ZOPICLONE
     Indication: Insomnia
     Dosage: 7.5 MILLIGRAM, QD (ZOPICLONE 7.5 MG/EVENING)
     Route: 065
     Dates: start: 20220929, end: 20221012

REACTIONS (3)
  - Sedation complication [Recovered/Resolved]
  - Hypotension [Recovered/Resolved]
  - Antipsychotic drug level above therapeutic [Recovered/Resolved]

NARRATIVE: CASE EVENT DATE: 20221001
